FAERS Safety Report 6399562-7 (Version None)
Quarter: 2009Q4

REPORT INFORMATION
  Report Type: 
  Country: None (occurrence: None)
  Receive Date: 20091013
  Receipt Date: 20091013
  Transmission Date: 20100525
  Serious: Yes (Hospitalization)
  Sender: FDA-Public Use
  Company Number: None

PATIENT
  Age: 45 Year
  Sex: Male
  Weight: 43 kg

DRUGS (3)
  1. FLUOROURACIL [Suspect]
     Dosage: 900MG IV
     Route: 042
     Dates: start: 20090920, end: 20090925
  2. HYDREA [Suspect]
     Dosage: 500MG BID PO
     Route: 048
     Dates: start: 20090920, end: 20090925
  3. CETUXIMAB 250MG/M2 [Suspect]
     Dosage: 375MG IV
     Route: 042
     Dates: start: 20090928, end: 20090928

REACTIONS (3)
  - BACTERIAL INFECTION [None]
  - CULTURE POSITIVE [None]
  - STAPHYLOCOCCAL INFECTION [None]
